FAERS Safety Report 14596459 (Version 2)
Quarter: 2018Q1

REPORT INFORMATION
  Report Type: Spontaneous
  Country: TH (occurrence: TH)
  Receive Date: 20180303
  Receipt Date: 20180308
  Transmission Date: 20180509
  Serious: Yes (Death, Hospitalization)
  Sender: FDA-Public Use
  Company Number: PHHY2018TH034110

PATIENT
  Age: 87 Year
  Sex: Male

DRUGS (2)
  1. ZYKADIA [Suspect]
     Active Substance: CERITINIB
     Indication: NON-SMALL CELL LUNG CANCER
     Dosage: 2 DF, QD
     Route: 048
     Dates: start: 20171026
  2. ZYKADIA [Suspect]
     Active Substance: CERITINIB
     Dosage: 3 DF, QD
     Route: 048

REACTIONS (10)
  - White matter lesion [Unknown]
  - Electrocardiogram QT shortened [Unknown]
  - Haemoptysis [Unknown]
  - Disturbance in attention [Unknown]
  - Malaise [Unknown]
  - Gastrooesophageal reflux disease [Unknown]
  - Insomnia [Unknown]
  - Non-small cell lung cancer [Fatal]
  - Malignant neoplasm progression [Fatal]
  - Constipation [Unknown]

NARRATIVE: CASE EVENT DATE: 20171123
